FAERS Safety Report 15368045 (Version 1)
Quarter: 2018Q3

REPORT INFORMATION
  Report Type: Spontaneous
  Country: US (occurrence: US)
  Receive Date: 20180904
  Receipt Date: 20180904
  Transmission Date: 20181010
  Serious: Yes (Other)
  Sender: FDA-Public Use
  Company Number: None

PATIENT
  Age: 52 Year
  Sex: Female
  Weight: 58.5 kg

DRUGS (1)
  1. BOTOX [Suspect]
     Active Substance: ONABOTULINUMTOXINA

REACTIONS (6)
  - Insurance issue [None]
  - Wrong technique in product usage process [None]
  - Eye pain [None]
  - Exposure to contaminated device [None]
  - Facial paralysis [None]
  - Product contamination [None]

NARRATIVE: CASE EVENT DATE: 20180808
